FAERS Safety Report 5495249-3 (Version None)
Quarter: 2007Q4

REPORT INFORMATION
  Report Type: 
  Country: None (occurrence: None)
  Receive Date: 20071024
  Receipt Date: 20071012
  Transmission Date: 20080405
  Serious: Yes (Other)
  Sender: FDA-Public Use
  Company Number: US-PFIZER INC-2007064366

PATIENT
  Sex: Female
  Weight: 53.5 kg

DRUGS (4)
  1. XALATAN [Suspect]
     Indication: GLAUCOMA
     Route: 031
  2. ALPRAZOLAM [Concomitant]
     Indication: ANXIETY
  3. AVAPRO [Concomitant]
     Indication: HYPERTENSION
  4. TIMOPTIC [Concomitant]

REACTIONS (6)
  - DRUG INEFFECTIVE [None]
  - HYPERSENSITIVITY [None]
  - INTRAOCULAR PRESSURE INCREASED [None]
  - LASER THERAPY [None]
  - LIP DISORDER [None]
  - RHINORRHOEA [None]
